FAERS Safety Report 25406337 (Version 1)
Quarter: 2025Q2

REPORT INFORMATION
  Report Type: Spontaneous
  Country: FR (occurrence: FR)
  Receive Date: 20250606
  Receipt Date: 20250606
  Transmission Date: 20250716
  Serious: Yes (Hospitalization)
  Sender: FRESENIUS KABI
  Company Number: None

PATIENT
  Age: 59 Year
  Sex: Female
  Weight: 108 kg

DRUGS (9)
  1. ACETAMINOPHEN [Suspect]
     Active Substance: ACETAMINOPHEN
     Indication: Product used for unknown indication
     Route: 042
     Dates: start: 20250505, end: 20250505
  2. PROPOFOL [Suspect]
     Active Substance: PROPOFOL
     Indication: General anaesthesia
     Route: 042
     Dates: start: 20250505, end: 20250505
  3. NEFOPAM HYDROCHLORIDE [Suspect]
     Active Substance: NEFOPAM HYDROCHLORIDE
     Indication: Pain
     Dates: start: 20250505, end: 20250509
  4. LOVENOX [Suspect]
     Active Substance: ENOXAPARIN SODIUM
     Indication: Thrombosis prophylaxis
     Route: 058
     Dates: start: 20250506, end: 20250508
  5. KETOPROFEN [Suspect]
     Active Substance: KETOPROFEN
     Indication: Antiinflammatory therapy
     Route: 042
     Dates: start: 20250506, end: 20250508
  6. KETAMINE [Suspect]
     Active Substance: KETAMINE
     Indication: Product used for unknown indication
     Route: 042
     Dates: start: 20250505, end: 20250505
  7. SUFENTANIL [Suspect]
     Active Substance: SUFENTANIL
     Indication: General anaesthesia
     Route: 042
     Dates: start: 20250505, end: 20250505
  8. DEXAMETHASONE [Suspect]
     Active Substance: DEXAMETHASONE
     Indication: General anaesthesia
     Route: 042
     Dates: start: 20250505, end: 20250505
  9. IOMERON [Suspect]
     Active Substance: IOMEPROL
     Indication: General anaesthesia
     Route: 042
     Dates: start: 20250507, end: 20250507

REACTIONS (1)
  - Acute generalised exanthematous pustulosis [Recovering/Resolving]

NARRATIVE: CASE EVENT DATE: 20250509
